FAERS Safety Report 4526671-7 (Version None)
Quarter: 2004Q4

REPORT INFORMATION
  Report Type: 
  Country: None (occurrence: None)
  Receive Date: 20041213
  Receipt Date: 20041130
  Transmission Date: 20050328
  Serious: Yes (Other)
  Sender: FDA-Public Use
  Company Number: 2004103610

PATIENT
  Age: 58 Year
  Sex: Female
  Weight: 122.4712 kg

DRUGS (2)
  1. CELEBREX [Suspect]
     Indication: MYALGIA
     Dosage: 400 MG (200 MG, 2 IN 1 D), ORAL
     Route: 048
  2. NORVASC [Suspect]
     Indication: PULMONARY HYPERTENSION
     Dosage: 1 IN 1 D, ORAL
     Route: 048

REACTIONS (3)
  - DISEASE PROGRESSION [None]
  - DRUG EFFECT DECREASED [None]
  - PULMONARY HYPERTENSION [None]
